FAERS Safety Report 4951300-8 (Version None)
Quarter: 2006Q1

REPORT INFORMATION
  Report Type: 
  Country: None (occurrence: None)
  Receive Date: 20060323
  Receipt Date: 20060113
  Transmission Date: 20060701
  Serious: Yes (Hospitalization)
  Sender: FDA-Public Use
  Company Number: 2006AP00268

PATIENT
  Sex: Male

DRUGS (4)
  1. IRESSA [Suspect]
     Indication: NON-SMALL CELL LUNG CANCER
     Route: 048
     Dates: start: 20051219
  2. GASMET [Suspect]
     Route: 048
  3. PAXIL [Suspect]
     Route: 048
  4. MYSLEE [Suspect]
     Route: 048

REACTIONS (1)
  - MANIA [None]
